FAERS Safety Report 9172329 (Version 1)
Quarter: 2013Q1

REPORT INFORMATION
  Report Type: Spontaneous
  Country: ES (occurrence: ES)
  Receive Date: 20130319
  Receipt Date: 20130319
  Transmission Date: 20140127
  Serious: Yes (Other)
  Sender: FDA-Public Use
  Company Number: ES-PFIZER INC-2013086308

PATIENT
  Age: 68 Year
  Sex: Male

DRUGS (1)
  1. METHYLPREDNISOLONE SODIUM SUCCINATE [Suspect]
     Indication: CHOLANGITIS SCLEROSING
     Dosage: 1 MG/KG, 1X/DAY

REACTIONS (1)
  - Colitis ulcerative [Recovering/Resolving]
